FAERS Safety Report 5397790-0 (Version None)
Quarter: 2007Q3

REPORT INFORMATION
  Report Type: 
  Country: None (occurrence: None)
  Receive Date: 20070726
  Receipt Date: 20070724
  Transmission Date: 20080115
  Serious: Yes (Hospitalization)
  Sender: FDA-Public Use
  Company Number: D0054076A

PATIENT
  Age: 37 Year
  Sex: Female
  Weight: 100 kg

DRUGS (4)
  1. LOFTAN [Suspect]
     Dosage: 4MG SEE DOSAGE TEXT
     Route: 048
     Dates: start: 20070723, end: 20070723
  2. BUSCOPAN PLUS [Suspect]
     Dosage: 510MG SEE DOSAGE TEXT
     Route: 048
     Dates: start: 20070723, end: 20070723
  3. IBUPROFEN [Suspect]
     Dosage: 400MG SEE DOSAGE TEXT
     Route: 048
     Dates: start: 20070723, end: 20070723
  4. ACETAMINOPHEN [Suspect]
     Dosage: 500MG SEE DOSAGE TEXT
     Route: 048
     Dates: start: 20070723, end: 20070723

REACTIONS (4)
  - ACIDOSIS [None]
  - INTENTIONAL OVERDOSE [None]
  - SOMNOLENCE [None]
  - SUICIDE ATTEMPT [None]
